FAERS Safety Report 8416043-7 (Version None)
Quarter: 2012Q2

REPORT INFORMATION
  Report Type: 
  Country: None (occurrence: None)
  Receive Date: 20120606
  Receipt Date: 20120528
  Transmission Date: 20120825
  Serious: Yes (Other)
  Sender: FDA-Public Use
  Company Number: CA-ROCHE-1058192

PATIENT
  Sex: Male

DRUGS (1)
  1. XOLAIR [Suspect]
     Indication: ASTHMA
     Route: 058
     Dates: start: 20110809

REACTIONS (7)
  - HERPES ZOSTER [None]
  - BLOOD PRESSURE INCREASED [None]
  - HEADACHE [None]
  - NASAL CONGESTION [None]
  - SKIN ULCER [None]
  - WHEEZING [None]
  - EXERCISE TOLERANCE DECREASED [None]
